FAERS Safety Report 9133968 (Version 2)
Quarter: 2013Q1

REPORT INFORMATION
  Report Type: Spontaneous
  Country: US (occurrence: US)
  Receive Date: 20130304
  Receipt Date: 20130322
  Transmission Date: 20140127
  Serious: No
  Sender: FDA-Public Use
  Company Number: US-009507513-1302USA011119

PATIENT
  Sex: Female

DRUGS (3)
  1. NASONEX [Suspect]
     Indication: SINUSITIS
     Dosage: 1-2 SPRAYS TWICE DAILY
     Route: 045
  2. NASONEX [Suspect]
     Indication: HYPERSENSITIVITY
  3. ZYRTEC [Concomitant]

REACTIONS (3)
  - Rhinorrhoea [Recovering/Resolving]
  - Product quality issue [Unknown]
  - Drug dose omission [Unknown]
